FAERS Safety Report 13283853 (Version 1)
Quarter: 2017Q1

REPORT INFORMATION
  Report Type: Spontaneous
  Country: IT (occurrence: IT)
  Receive Date: 20170301
  Receipt Date: 20170301
  Transmission Date: 20170428
  Serious: Yes (Other)
  Sender: FDA-Public Use
  Company Number: IT-TEVA-744805ACC

PATIENT
  Sex: Female

DRUGS (5)
  1. EN [Concomitant]
     Active Substance: DELORAZEPAM
  2. CARBOPLATIN. [Suspect]
     Active Substance: CARBOPLATIN
     Indication: OVARIAN CANCER
  3. TAXOL [Concomitant]
     Active Substance: PACLITAXEL
     Route: 041
  4. LOSARTAN. [Concomitant]
     Active Substance: LOSARTAN
     Route: 048
  5. BEVACIZUMAB [Concomitant]
     Active Substance: BEVACIZUMAB
     Route: 042

REACTIONS (3)
  - Erythema [Unknown]
  - Pruritus [Unknown]
  - Retching [Unknown]
